FAERS Safety Report 25646280 (Version 1)
Quarter: 2025Q3

REPORT INFORMATION
  Report Type: Spontaneous
  Country: EU (occurrence: EU)
  Receive Date: 20250805
  Receipt Date: 20250805
  Transmission Date: 20251021
  Serious: Yes (Hospitalization)
  Sender: MYLAN
  Company Number: None

PATIENT
  Age: 53 Year
  Sex: Male
  Weight: 71 kg

DRUGS (8)
  1. ALPRAZOLAM [Suspect]
     Active Substance: ALPRAZOLAM
     Indication: Product used for unknown indication
     Dates: start: 20250624, end: 20250624
  2. ALPRAZOLAM [Suspect]
     Active Substance: ALPRAZOLAM
     Route: 048
     Dates: start: 20250624, end: 20250624
  3. ALPRAZOLAM [Suspect]
     Active Substance: ALPRAZOLAM
     Route: 048
     Dates: start: 20250624, end: 20250624
  4. ALPRAZOLAM [Suspect]
     Active Substance: ALPRAZOLAM
     Dates: start: 20250624, end: 20250624
  5. AMLODIPINE [Suspect]
     Active Substance: AMLODIPINE BESYLATE
     Indication: Product used for unknown indication
     Dates: start: 20250624, end: 20250624
  6. AMLODIPINE [Suspect]
     Active Substance: AMLODIPINE BESYLATE
     Route: 048
     Dates: start: 20250624, end: 20250624
  7. AMLODIPINE [Suspect]
     Active Substance: AMLODIPINE BESYLATE
     Route: 048
     Dates: start: 20250624, end: 20250624
  8. AMLODIPINE [Suspect]
     Active Substance: AMLODIPINE BESYLATE
     Dates: start: 20250624, end: 20250624

REACTIONS (3)
  - Altered state of consciousness [Recovered/Resolved]
  - Respiratory distress [Recovered/Resolved]
  - Poisoning deliberate [Recovered/Resolved]

NARRATIVE: CASE EVENT DATE: 20250624
